FAERS Safety Report 7580410-4 (Version None)
Quarter: 2011Q2

REPORT INFORMATION
  Report Type: 
  Country: None (occurrence: None)
  Receive Date: 20110620
  Receipt Date: 20110531
  Transmission Date: 20111010
  Serious: Yes (Death, Hospitalization)
  Sender: FDA-Public Use
  Company Number: 2011028750

PATIENT
  Age: 71 Year
  Sex: Male

DRUGS (9)
  1. ANALGESICS (ANALGESICS) [Concomitant]
  2. PRIVIGEN [Suspect]
  3. ANTIDEPRESSANTS (ANTIDEPRESSANTS) [Concomitant]
  4. ANTIVIRALS NOS (ANTIVIRALS NOS) [Concomitant]
  5. PRIVIGEN [Suspect]
     Indication: HYPOGAMMAGLOBULINAEMIA
     Dosage: 20 G QD INTRAVENOUS, 10 G/100 ML, INTRAVENOUS, 20 G 1X/MONTH
     Route: 042
     Dates: start: 20101015, end: 20110202
  6. PRIVIGEN [Suspect]
     Indication: HYPOGAMMAGLOBULINAEMIA
     Dosage: 20 G QD INTRAVENOUS, 10 G/100 ML, INTRAVENOUS, 20 G 1X/MONTH
     Route: 042
     Dates: start: 20110302, end: 20110302
  7. PRIVIGEN [Suspect]
  8. PRIVIGEN [Suspect]
  9. PRIVIGEN [Suspect]

REACTIONS (5)
  - GENERAL PHYSICAL HEALTH DETERIORATION [None]
  - ACUTE LEUKAEMIA [None]
  - DYSPNOEA [None]
  - LYMPHADENOPATHY [None]
  - ERYTHEMA [None]
